FAERS Safety Report 10884874 (Version 4)
Quarter: 2015Q1

REPORT INFORMATION
  Report Type: Report from Study
  Country: US (occurrence: US)
  Receive Date: 20150304
  Receipt Date: 20150324
  Transmission Date: 20150721
  Serious: Yes (Hospitalization)
  Sender: FDA-Public Use
  Company Number: US-JNJFOC-20150301140

PATIENT
  Age: 15 Year
  Sex: Female
  Weight: 48.1 kg

DRUGS (9)
  1. INFLIXIMAB, RECOMBINANT [Suspect]
     Active Substance: INFLIXIMAB
     Indication: CROHN^S DISEASE
     Route: 042
     Dates: start: 20090922, end: 201009
  2. BUDESONIDE. [Concomitant]
     Active Substance: BUDESONIDE
     Route: 065
  3. ZOFRAN [Concomitant]
     Active Substance: ONDANSETRON HYDROCHLORIDE
     Route: 065
  4. VITAMIN D3 [Concomitant]
     Active Substance: CHOLECALCIFEROL
     Route: 065
  5. MELATONIN [Concomitant]
     Active Substance: MELATONIN
     Route: 065
  6. CIMZIA [Concomitant]
     Active Substance: CERTOLIZUMAB PEGOL
     Route: 065
     Dates: start: 20140204, end: 201407
  7. TYLENOL [Concomitant]
     Active Substance: ACETAMINOPHEN
     Route: 065
  8. CALCIUM [Concomitant]
     Active Substance: CALCIUM
     Route: 065
  9. VITRON-C [Concomitant]
     Route: 065

REACTIONS (2)
  - Crohn^s disease [Recovered/Resolved]
  - Small intestinal obstruction [Recovered/Resolved]

NARRATIVE: CASE EVENT DATE: 201501
